FAERS Safety Report 12101324 (Version 2)
Quarter: 2016Q1

REPORT INFORMATION
  Report Type: Spontaneous
  Country: US (occurrence: US)
  Receive Date: 20160222
  Receipt Date: 20160321
  Transmission Date: 20160526
  Serious: No
  Sender: FDA-Public Use
  Company Number: US-ASTRAZENECA-2016SE15202

PATIENT
  Sex: Male
  Weight: 113.4 kg

DRUGS (1)
  1. BYETTA [Suspect]
     Active Substance: EXENATIDE
     Indication: BLOOD GLUCOSE INCREASED
     Route: 058
     Dates: start: 2014

REACTIONS (4)
  - Diabetes mellitus inadequate control [Unknown]
  - Device defective [Unknown]
  - Blood glucose increased [Unknown]
  - Incorrect dose administered [Unknown]
